FAERS Safety Report 11209451 (Version 1)
Quarter: 2015Q2

REPORT INFORMATION
  Report Type: Spontaneous
  Country: US (occurrence: US)
  Receive Date: 20150622
  Receipt Date: 20150622
  Transmission Date: 20150821
  Serious: No
  Sender: FDA-Public Use
  Company Number: US-TAKEDA-2012-01138

PATIENT
  Age: 64 Year
  Sex: Male

DRUGS (1)
  1. VELCADE [Suspect]
     Active Substance: BORTEZOMIB
     Indication: PLASMA CELL MYELOMA
     Dosage: UNK
     Route: 042

REACTIONS (8)
  - Neuropathy peripheral [Unknown]
  - Arthralgia [Unknown]
  - Fatigue [Unknown]
  - Oropharyngeal pain [Unknown]
  - Sleep disorder [Unknown]
  - Nausea [Unknown]
  - Myalgia [Unknown]
  - Thirst [Unknown]

NARRATIVE: CASE EVENT DATE: 20111103
